FAERS Safety Report 24556639 (Version 2)
Quarter: 2024Q4

REPORT INFORMATION
  Report Type: Spontaneous
  Country: IN (occurrence: IN)
  Receive Date: 20241028
  Receipt Date: 20241104
  Transmission Date: 20250115
  Serious: Yes (Other)
  Sender: BAUSCH AND LOMB
  Company Number: IN-MLMSERVICE-20241014-PI225712-00117-1

PATIENT
  Age: 50 Year
  Sex: Male

DRUGS (11)
  1. DEXAMETHASONE [Suspect]
     Active Substance: DEXAMETHASONE
     Indication: Enteropathy-associated T-cell lymphoma
     Dosage: HIGH DOSE
     Route: 065
  2. CYCLOPHOSPHAMIDE [Suspect]
     Active Substance: CYCLOPHOSPHAMIDE
     Indication: Enteropathy-associated T-cell lymphoma
     Dosage: INITIATED AND COMPLETED 6 CYCLES
     Route: 065
  3. CYCLOPHOSPHAMIDE [Suspect]
     Active Substance: CYCLOPHOSPHAMIDE
     Dosage: HIGH DOSE
     Route: 065
  4. DOXORUBICIN [Suspect]
     Active Substance: DOXORUBICIN
     Indication: Enteropathy-associated T-cell lymphoma
     Dosage: INITIATED AND COMPLETED 6 CYCLES
     Route: 065
  5. DOXORUBICIN [Suspect]
     Active Substance: DOXORUBICIN
     Indication: Enteropathy-associated T-cell lymphoma
     Dosage: HIGH DOSE
     Route: 065
  6. VINCRISTINE [Suspect]
     Active Substance: VINCRISTINE
     Indication: Enteropathy-associated T-cell lymphoma
     Dosage: INITIATED AND COMPLETED 6 CYCLES
     Route: 065
  7. VINCRISTINE [Suspect]
     Active Substance: VINCRISTINE
     Dosage: HIGH DOSE
     Route: 065
  8. ETOPOSIDE [Suspect]
     Active Substance: ETOPOSIDE
     Indication: Enteropathy-associated T-cell lymphoma
     Dosage: INITIATED AND COMPLETED 6 CYCLES
     Route: 065
  9. PREDNISOLONE [Suspect]
     Active Substance: PREDNISOLONE
     Indication: Enteropathy-associated T-cell lymphoma
     Dosage: INITIATED AND COMPLETED 6 CYCLES
     Route: 065
  10. METHOTREXATE [Suspect]
     Active Substance: METHOTREXATE
     Indication: Enteropathy-associated T-cell lymphoma
     Dosage: HIGH DOSE
     Route: 065
  11. CYTARABINE [Suspect]
     Active Substance: CYTARABINE
     Indication: Enteropathy-associated T-cell lymphoma
     Dosage: HIGH DOSE
     Route: 065

REACTIONS (2)
  - Febrile neutropenia [Unknown]
  - Septic shock [Unknown]
